FAERS Safety Report 6829695-X (Version None)
Quarter: 2010Q3

REPORT INFORMATION
  Report Type: 
  Country: None (occurrence: None)
  Receive Date: 20100709
  Receipt Date: 20070525
  Transmission Date: 20110219
  Serious: Yes (Other)
  Sender: FDA-Public Use
  Company Number: US-PFIZER INC-2007019752

PATIENT
  Sex: Male
  Weight: 80.7 kg

DRUGS (6)
  1. CHANTIX [Suspect]
     Indication: SMOKING CESSATION THERAPY
     Route: 048
     Dates: start: 20070201, end: 20070201
  2. DEPAKOTE [Interacting]
     Indication: BIPOLAR DISORDER
     Dosage: DAILY
  3. DEPAKOTE [Interacting]
     Indication: DEPRESSION
  4. PAXIL [Interacting]
     Indication: BIPOLAR DISORDER
     Dosage: DAILY
  5. PAXIL [Interacting]
     Indication: DEPRESSION
  6. DIOVAN [Concomitant]

REACTIONS (3)
  - AFFECT LABILITY [None]
  - DRUG INTERACTION [None]
  - MOOD SWINGS [None]
